FAERS Safety Report 8176997-3 (Version None)
Quarter: 2012Q1

REPORT INFORMATION
  Report Type: 
  Country: None (occurrence: None)
  Receive Date: 20120301
  Receipt Date: 20120223
  Transmission Date: 20120608
  Serious: Yes (Hospitalization)
  Sender: FDA-Public Use
  Company Number: US-BAYER-2011-051058

PATIENT
  Age: 32 Year
  Sex: Female
  Weight: 81.633 kg

DRUGS (12)
  1. DROSPIRENONE AND ETHINYL ESTRADIOL [Suspect]
     Indication: CONTRACEPTION
     Dosage: UNK
     Dates: start: 20060101, end: 20070101
  2. PAXIL [Concomitant]
     Indication: ANXIETY
  3. RETIN-A [Concomitant]
     Indication: ACNE
     Dosage: UNK
     Route: 061
     Dates: start: 20090407
  4. YASMIN [Suspect]
     Dosage: UNK
     Dates: start: 20080101, end: 20090601
  5. ACETYLSALICYLIC ACID SRT [Concomitant]
  6. CHANTIX [Concomitant]
     Indication: EX-TOBACCO USER
     Dosage: 1 G, BID
     Route: 048
     Dates: start: 20090407
  7. ATIVAN [Concomitant]
     Indication: ANXIETY
     Dosage: 0.5 MG, BID AS NEEDED
     Route: 048
     Dates: start: 20090407
  8. DROSPIRENONE AND ETHINYL ESTRADIOL [Suspect]
     Dosage: UNK
     Dates: start: 20080101, end: 20090601
  9. ALLEGRA [Concomitant]
     Indication: MULTIPLE ALLERGIES
     Dosage: 180 MG, DAILY
     Route: 048
     Dates: start: 20090407
  10. YASMIN [Suspect]
     Indication: CONTRACEPTION
     Dosage: UNK
     Dates: start: 20060101, end: 20070101
  11. LABETALOL HCL [Concomitant]
     Indication: HYPERTENSION
     Dosage: UNK UNK, QD
     Route: 048
     Dates: start: 20090418
  12. TESSALON [Concomitant]
     Indication: BRONCHITIS
     Dosage: 100 MG, TID
     Route: 048
     Dates: start: 20090407

REACTIONS (5)
  - EMOTIONAL DISTRESS [None]
  - CEREBROVASCULAR ACCIDENT [None]
  - ANXIETY [None]
  - PAIN [None]
  - GENERAL PHYSICAL HEALTH DETERIORATION [None]
